FAERS Safety Report 14295762 (Version 3)
Quarter: 2018Q3

REPORT INFORMATION
  Report Type: Spontaneous
  Country: US (occurrence: US)
  Receive Date: 20171218
  Receipt Date: 20180910
  Transmission Date: 20181010
  Serious: Yes (Other)
  Sender: FDA-Public Use
  Company Number: US-DRREDDYS-USA/USA/17/0094882

PATIENT
  Sex: Female
  Weight: 68 kg

DRUGS (1)
  1. NICOTINE. [Suspect]
     Active Substance: NICOTINE
     Indication: SMOKING CESSATION THERAPY
     Route: 065
     Dates: start: 20170825

REACTIONS (3)
  - Product adhesion issue [Unknown]
  - Drug dose omission [Unknown]
  - Pneumonia [Recovered/Resolved]
